FAERS Safety Report 6298783-1 (Version None)
Quarter: 2009Q3

REPORT INFORMATION
  Report Type: 
  Country: None (occurrence: None)
  Receive Date: 20090805
  Receipt Date: 20090805
  Transmission Date: 20100115
  Serious: Yes (Other)
  Sender: FDA-Public Use
  Company Number: None

PATIENT
  Sex: Male
  Weight: 58.9676 kg

DRUGS (1)
  1. METOPROLOL SUCCINATE EXTENDED RELEASE [Suspect]
     Indication: CARDIAC DISORDER
     Dosage: 25 MG - 1 DAILY MOUTH
     Route: 048
     Dates: start: 20080101, end: 20081101

REACTIONS (4)
  - HEART RATE DECREASED [None]
  - LACRIMATION INCREASED [None]
  - RASH [None]
  - WHEEZING [None]
